FAERS Safety Report 6280748-7 (Version None)
Quarter: 2009Q3

REPORT INFORMATION
  Report Type: 
  Country: None (occurrence: None)
  Receive Date: 20090724
  Receipt Date: 20081231
  Transmission Date: 20100115
  Serious: No
  Sender: FDA-Public Use
  Company Number: A0762077A

PATIENT
  Age: 59 Year
  Sex: Female

DRUGS (2)
  1. AVANDIA [Suspect]
     Indication: INSULIN RESISTANCE
     Dosage: 2MG PER DAY
     Route: 048
     Dates: start: 20081117
  2. MELOXICAM [Concomitant]

REACTIONS (4)
  - FEELING COLD [None]
  - FORMICATION [None]
  - PARAESTHESIA [None]
  - PERIPHERAL COLDNESS [None]
